FAERS Safety Report 18935269 (Version 6)
Quarter: 2024Q1

REPORT INFORMATION
  Report Type: Spontaneous
  Country: US (occurrence: US)
  Receive Date: 20210224
  Receipt Date: 20240207
  Transmission Date: 20240410
  Serious: No
  Sender: FDA-Public Use
  Company Number: US-HRARD-202000700

PATIENT
  Age: 67 Year
  Sex: Female
  Weight: 52.2 kg

DRUGS (21)
  1. MITOTANE [Suspect]
     Active Substance: MITOTANE
     Indication: Adrenal gland cancer
     Dosage: 01 TABLET 04 TIMES DAILY, TO BE TAKEN WITH OR WITHOUT FOOD
     Route: 048
     Dates: start: 20201118, end: 20230529
  2. KORLYM [Suspect]
     Active Substance: MIFEPRISTONE
     Indication: Cushing^s syndrome
     Dates: start: 202003
  3. ALENDRONATE SODIUM [Concomitant]
     Active Substance: ALENDRONATE SODIUM
     Indication: Product used for unknown indication
  4. KLOR-CON [Concomitant]
     Active Substance: POTASSIUM CHLORIDE
     Indication: Product used for unknown indication
  5. MAGNESIUM OXIDE [Concomitant]
     Active Substance: MAGNESIUM OXIDE
     Indication: Product used for unknown indication
  6. MELOXICAM [Concomitant]
     Active Substance: MELOXICAM
     Indication: Product used for unknown indication
  7. ATORVASTATIN [Concomitant]
     Active Substance: ATORVASTATIN
     Indication: Product used for unknown indication
  8. METFORMIN [Concomitant]
     Active Substance: METFORMIN HYDROCHLORIDE
     Indication: Product used for unknown indication
  9. LISINOPRIL [Concomitant]
     Active Substance: LISINOPRIL
     Indication: Product used for unknown indication
  10. Furosemide tablet 20 mg [Concomitant]
     Indication: Product used for unknown indication
  11. DEXAMETHASONE [Concomitant]
     Active Substance: DEXAMETHASONE
     Indication: Product used for unknown indication
  12. Nystat/Traim cre [Concomitant]
     Indication: Product used for unknown indication
  13. ONDANSETRON [Concomitant]
     Active Substance: ONDANSETRON
     Indication: Product used for unknown indication
  14. SPIRONOLACTONE [Concomitant]
     Active Substance: SPIRONOLACTONE
     Indication: Product used for unknown indication
  15. AMLODIPINE [Concomitant]
     Active Substance: AMLODIPINE BESYLATE
     Indication: Product used for unknown indication
  16. Atenolol TAB 100mg [Concomitant]
     Indication: Product used for unknown indication
  17. Clonidine tab 0.1mg [Concomitant]
     Indication: Product used for unknown indication
  18. Fish oil CAP 1000MG [Concomitant]
     Indication: Product used for unknown indication
  19. HYDRALAZINE [Concomitant]
     Active Substance: HYDRALAZINE HYDROCHLORIDE
     Indication: Product used for unknown indication
  20. Levothyroxin tab 50mcg [Concomitant]
     Indication: Product used for unknown indication
  21. Potassium pow sulfate [Concomitant]
     Indication: Product used for unknown indication

REACTIONS (4)
  - Blood potassium increased [Unknown]
  - Gait inability [Unknown]
  - Pruritus [Unknown]
  - Drug ineffective [Unknown]

NARRATIVE: CASE EVENT DATE: 20200101
